FAERS Safety Report 8545856-6 (Version None)
Quarter: 2012Q3

REPORT INFORMATION
  Report Type: 
  Country: None (occurrence: None)
  Receive Date: 20120727
  Receipt Date: 20111116
  Transmission Date: 20120928
  Serious: No
  Sender: FDA-Public Use
  Company Number: US-ASTRAZENECA-2011SE69427

PATIENT
  Age: 47 Year
  Sex: Female

DRUGS (6)
  1. VALIUM [Concomitant]
  2. SEROQUEL [Suspect]
     Indication: INSOMNIA
     Route: 048
  3. SEROQUEL [Suspect]
     Indication: DEPRESSION
     Route: 048
  4. SEROQUEL [Suspect]
     Indication: PANIC ATTACK
     Route: 048
  5. ALPRAZOLAM [Concomitant]
  6. FLUOXETINE HCL [Concomitant]

REACTIONS (4)
  - ACTIVITIES OF DAILY LIVING IMPAIRED [None]
  - OFF LABEL USE [None]
  - DRUG DOSE OMISSION [None]
  - PSYCHOTIC DISORDER [None]
